FAERS Safety Report 21599797 (Version 4)
Quarter: 2022Q4

REPORT INFORMATION
  Report Type: Spontaneous
  Country: DE (occurrence: DE)
  Receive Date: 20221115
  Receipt Date: 20221216
  Transmission Date: 20230113
  Serious: Yes (Other)
  Sender: FDA-Public Use
  Company Number: DE-BRISTOL-MYERS SQUIBB COMPANY-2022-135843

PATIENT
  Age: 80 Year
  Sex: Female

DRUGS (1)
  1. ORENCIA [Suspect]
     Active Substance: ABATACEPT
     Indication: Rheumatic disorder
     Dates: start: 20200923

REACTIONS (22)
  - Gastrointestinal haemorrhage [Not Recovered/Not Resolved]
  - Product temperature excursion issue [Unknown]
  - Urinary tract infection [Recovered/Resolved]
  - COVID-19 [Recovering/Resolving]
  - Alopecia [Unknown]
  - Depression [Unknown]
  - Fatigue [Unknown]
  - Cataract [Unknown]
  - Atrial fibrillation [Unknown]
  - Dry eye [Unknown]
  - Anxiety [Unknown]
  - Gastrointestinal disorder [Unknown]
  - Sleep disorder [Unknown]
  - Panic reaction [Unknown]
  - Cardiac disorder [Unknown]
  - Eye pruritus [Unknown]
  - Hyperkeratosis [Unknown]
  - Skin discolouration [Unknown]
  - Dizziness [Unknown]
  - Arrhythmia [Unknown]
  - Nail discolouration [Not Recovered/Not Resolved]
  - Oesophageal discomfort [Not Recovered/Not Resolved]

NARRATIVE: CASE EVENT DATE: 20220821
